FAERS Safety Report 19783330 (Version 3)
Quarter: 2025Q1

REPORT INFORMATION
  Report Type: Spontaneous
  Country: IT (occurrence: IT)
  Receive Date: 20210902
  Receipt Date: 20250124
  Transmission Date: 20250409
  Serious: Yes (Hospitalization, Other)
  Sender: REGENERON
  Company Number: IT-SA-2021SA282365

PATIENT
  Age: 90 Year
  Sex: Male

DRUGS (1)
  1. CEMIPLIMAB [Suspect]
     Active Substance: CEMIPLIMAB
     Indication: Skin squamous cell carcinoma recurrent
     Dosage: 350 MG, Q3W
     Route: 042
     Dates: start: 202003

REACTIONS (6)
  - Myasthenic syndrome [Recovering/Resolving]
  - Muscular weakness [Recovering/Resolving]
  - Posture abnormal [Recovering/Resolving]
  - Dysphagia [Recovering/Resolving]
  - Dysphonia [Recovering/Resolving]
  - Disease progression [Unknown]

NARRATIVE: CASE EVENT DATE: 20200101
